FAERS Safety Report 8157074-4 (Version None)
Quarter: 2012Q1

REPORT INFORMATION
  Report Type: 
  Country: None (occurrence: None)
  Receive Date: 20120222
  Receipt Date: 20120110
  Transmission Date: 20120608
  Serious: Yes (Hospitalization)
  Sender: FDA-Public Use
  Company Number: NL-MYLANLABS-2011S1021266

PATIENT
  Age: 51 Year
  Sex: Male
  Weight: 100 kg

DRUGS (13)
  1. METOPROLOL TARTRATE [Suspect]
     Indication: ACUTE CORONARY SYNDROME
     Route: 048
     Dates: start: 20110316, end: 20110325
  2. BIVALIRUDIN [Suspect]
     Route: 040
     Dates: start: 20110316, end: 20110316
  3. ASPIRIN [Concomitant]
     Indication: PRODUCT USED FOR UNKNOWN INDICATION
  4. OFLOXACIN [Suspect]
     Indication: BLOOD CHOLESTEROL
     Route: 048
     Dates: end: 20110425
  5. PANTOZAL [Concomitant]
     Indication: PRODUCT USED FOR UNKNOWN INDICATION
     Dates: start: 20110316
  6. CLOPIDOGREL [Concomitant]
     Indication: PRODUCT USED FOR UNKNOWN INDICATION
     Dates: start: 20110316, end: 20110316
  7. CLOPIDOGREL [Concomitant]
     Dates: start: 20110317
  8. LIPITOR [Concomitant]
     Indication: PRODUCT USED FOR UNKNOWN INDICATION
     Dates: start: 20110316
  9. BIVALIRUDIN [Suspect]
     Route: 040
     Dates: start: 20110316, end: 20110316
  10. PERINDOPRIL [Concomitant]
     Indication: PRODUCT USED FOR UNKNOWN INDICATION
     Dates: start: 20110317
  11. HEPARIN [Concomitant]
     Indication: PRODUCT USED FOR UNKNOWN INDICATION
  12. BIVALIRUDIN [Suspect]
     Indication: PERCUTANEOUS CORONARY INTERVENTION
     Route: 040
     Dates: start: 20110316, end: 20110316
  13. ASPIRIN [Concomitant]
     Dates: start: 20110317

REACTIONS (2)
  - HYPOTENSION [None]
  - BRADYCARDIA [None]
